FAERS Safety Report 9320394 (Version 2)
Quarter: 2013Q4

REPORT INFORMATION
  Report Type: Spontaneous
  Country: US (occurrence: US)
  Receive Date: 20130530
  Receipt Date: 20131002
  Transmission Date: 20140711
  Serious: Yes (Hospitalization)
  Sender: FDA-Public Use
  Company Number: US-B.I. PHARMACEUTICALS,INC./RIDGEFIELD-2013-BI-14551BP

PATIENT
  Sex: Female
  Weight: 79.83 kg

DRUGS (7)
  1. PRADAXA [Suspect]
     Indication: ATRIAL FIBRILLATION
     Dosage: 300 MG
     Route: 048
     Dates: start: 20110701, end: 20110823
  2. LOVASTATIN [Concomitant]
     Dosage: 40 MG
     Route: 048
  3. OMEPRAZOLE [Concomitant]
     Dosage: 10 MG
     Route: 048
  4. TRAMADOL [Concomitant]
     Indication: PAIN
     Route: 048
  5. VITAMIN D3 [Concomitant]
     Dosage: 5000 U
     Route: 048
  6. COREG [Concomitant]
     Dosage: 50 MG
     Route: 048
  7. GLUCOSAMINE CHONDROITIN WITH SULFATE [Concomitant]
     Route: 048

REACTIONS (6)
  - Menorrhagia [Unknown]
  - Endometrial adenocarcinoma [Unknown]
  - Anaemia [Not Recovered/Not Resolved]
  - Haemorrhage [Not Recovered/Not Resolved]
  - Coagulopathy [Unknown]
  - Increased tendency to bruise [Unknown]
